FAERS Safety Report 19159197 (Version 1)
Quarter: 2021Q2

REPORT INFORMATION
  Report Type: Spontaneous
  Country: DE (occurrence: DE)
  Receive Date: 20210420
  Receipt Date: 20210420
  Transmission Date: 20210717
  Serious: Yes (Hospitalization, Other)
  Sender: FDA-Public Use
  Company Number: DE-TEVA-2021-DE-1901808

PATIENT
  Age: 77 Year
  Sex: Male

DRUGS (10)
  1. TORASEMID [Concomitant]
     Active Substance: TORSEMIDE
     Dosage: 5 MG,
  2. MAGNESIUM [Concomitant]
     Active Substance: MAGNESIUM
     Dosage: 243 MILLIGRAM DAILY;  0?1?0?0,
  3. TAMSULOSIN [Concomitant]
     Active Substance: TAMSULOSIN
     Dosage: .4 MILLIGRAM DAILY;  0?0?1?0,
  4. METOPROLOL. [Concomitant]
     Active Substance: METOPROLOL
     Dosage: 47.5 MG, 1?0?1?0, UNIT DOSE : 2 DF
  5. APIXABAN [Suspect]
     Active Substance: APIXABAN
     Dosage: 5 MG, 1?0?1?0, UNIT DOSE : 10 MG
  6. EZETIMIB [Concomitant]
     Active Substance: EZETIMIBE
     Dosage: 10 MILLIGRAM DAILY; 0?0?1?0,
  7. SIMVASTATIN. [Concomitant]
     Active Substance: SIMVASTATIN
     Dosage: 40 MILLIGRAM DAILY;  0?0?1?0,
  8. CLOPIDOGREL [Suspect]
     Active Substance: CLOPIDOGREL BISULFATE
     Dosage: 75 MILLIGRAM DAILY; 1?0?0?0,
  9. LEVODOPA/BENSERAZID [Concomitant]
     Active Substance: BENSERAZIDE\LEVODOPA
     Dosage: 1 DOSAGE FORMS DAILY; 25|100 MG, 0?0?0?1,
  10. RAMIPRIL. [Concomitant]
     Active Substance: RAMIPRIL
     Dosage: 2.5 MILLIGRAM DAILY; 5 MG, 0.5?0?0?0

REACTIONS (7)
  - Exercise tolerance decreased [Unknown]
  - Haematochezia [Unknown]
  - Melaena [Unknown]
  - Anaemia [Unknown]
  - Dizziness [Unknown]
  - Dyspnoea [Unknown]
  - Mucosal haemorrhage [Unknown]
